FAERS Safety Report 11120981 (Version 1)
Quarter: 2015Q2

REPORT INFORMATION
  Report Type: Spontaneous
  Country: US (occurrence: None)
  Receive Date: 20150515
  Receipt Date: 20150515
  Transmission Date: 20150821
  Serious: Yes (Hospitalization, Other)
  Sender: FDA-Public Use
  Company Number: US-ZYDUS-007971

PATIENT
  Age: 56 Year
  Sex: Male

DRUGS (1)
  1. METFORMIN [Suspect]
     Active Substance: METFORMIN HYDROCHLORIDE
     Indication: TYPE 2 DIABETES MELLITUS
     Dosage: 500.00-MG-2.00 TIME PER-1.0DAYS

REACTIONS (10)
  - Jaundice [None]
  - Mental status changes [None]
  - Drug level increased [None]
  - Haemodialysis [None]
  - International normalised ratio increased [None]
  - Ascites [None]
  - Metabolic acidosis [None]
  - Respiratory failure [None]
  - Syncope [None]
  - Oedema [None]
